FAERS Safety Report 11639739 (Version 1)
Quarter: 2015Q4

REPORT INFORMATION
  Report Type: Spontaneous
  Country: US (occurrence: None)
  Receive Date: 20151016
  Receipt Date: 20151016
  Transmission Date: 20160304
  Serious: Yes (Other)
  Sender: FDA-Public Use
  Company Number: None

PATIENT
  Age: 37 Year
  Sex: Female
  Weight: 55.34 kg

DRUGS (2)
  1. JUBLIA [Suspect]
     Active Substance: EFINACONAZOLE
     Indication: ONYCHOMYCOSIS
     Dosage: 2-4ML BOTTLES ONCE DAILY APPLIED TO A SURFACE, USUALLY THE SKIN
     Route: 061
  2. MOTRIN [Concomitant]
     Active Substance: IBUPROFEN

REACTIONS (5)
  - Application site discolouration [None]
  - Product quality issue [None]
  - Application site vesicles [None]
  - Application site discharge [None]
  - Application site hypersensitivity [None]

NARRATIVE: CASE EVENT DATE: 20150701
